FAERS Safety Report 16785985 (Version 1)
Quarter: 2019Q4

REPORT INFORMATION
  Report Type: Spontaneous
  Country: CA (occurrence: CA)
  Receive Date: 20190908
  Receipt Date: 20190908
  Transmission Date: 20200122
  Serious: No
  Sender: FDA-Public Use
  Company Number: None

PATIENT
  Age: 24 Year
  Sex: Male
  Weight: 108 kg

DRUGS (1)
  1. HAWAIIAN SOL REEF SAFE SUNSCREEN [TITANIUM DIOXIDE\ZINC] [Suspect]
     Active Substance: TITANIUM DIOXIDE\ZINC OXIDE
     Indication: PROPHYLAXIS AGAINST SOLAR RADIATION
     Dosage: ?          QUANTITY:1 BOTTLE;?
     Route: 061
     Dates: start: 20190809, end: 20190809

REACTIONS (5)
  - Therapeutic product ineffective [None]
  - Sunburn [None]
  - Skin exfoliation [None]
  - Blister [None]
  - Pruritus [None]

NARRATIVE: CASE EVENT DATE: 20190809
